FAERS Safety Report 7693661-5 (Version None)
Quarter: 2011Q3

REPORT INFORMATION
  Report Type: 
  Country: None (occurrence: None)
  Receive Date: 20110819
  Receipt Date: 20110816
  Transmission Date: 20111222
  Serious: Yes (Other)
  Sender: FDA-Public Use
  Company Number: NL-PFIZER INC-2011159284

PATIENT
  Age: 61 Year
  Sex: Female

DRUGS (5)
  1. ZOPICLONE [Concomitant]
     Dosage: UNK
  2. THYRAX [Concomitant]
     Indication: AUTOIMMUNE THYROIDITIS
     Dosage: 200 ML, UNK
  3. VARENICLINE TARTRATE [Suspect]
     Indication: SMOKING CESSATION THERAPY
     Dosage: UNK
     Dates: start: 20110101, end: 20110101
  4. OXAZEPAM [Concomitant]
  5. ST. JOHN'S WORT [Concomitant]
     Dosage: UNK

REACTIONS (8)
  - VITREOUS DETACHMENT [None]
  - BLADDER DISORDER [None]
  - VAGINAL DISORDER [None]
  - VISUAL IMPAIRMENT [None]
  - VISION BLURRED [None]
  - RETINAL TEAR [None]
  - LACRIMATION INCREASED [None]
  - NAUSEA [None]
